FAERS Safety Report 4915361-4 (Version None)
Quarter: 2006Q1

REPORT INFORMATION
  Report Type: 
  Country: None (occurrence: None)
  Receive Date: 20060113
  Receipt Date: 20051026
  Transmission Date: 20060701
  Serious: No
  Sender: FDA-Public Use
  Company Number: 2005SP003707

PATIENT
  Age: 54 Year
  Sex: Male
  Weight: 83.9154 kg

DRUGS (5)
  1. LUNESTA [Suspect]
     Indication: SLEEP DISORDER
     Dosage: 3 MG;ORAL
     Route: 048
     Dates: start: 20051020, end: 20051023
  2. METOPROLOL [Concomitant]
  3. AVAPRO [Concomitant]
  4. PRAVACHOL [Concomitant]
  5. OMEPRAZOLE [Concomitant]

REACTIONS (6)
  - CHEST DISCOMFORT [None]
  - DRUG INEFFECTIVE [None]
  - FATIGUE [None]
  - INITIAL INSOMNIA [None]
  - MOOD SWINGS [None]
  - NAUSEA [None]
